FAERS Safety Report 8179096-X (Version None)
Quarter: 2012Q1

REPORT INFORMATION
  Report Type: 
  Country: None (occurrence: None)
  Receive Date: 20120302
  Receipt Date: 20120221
  Transmission Date: 20120608
  Serious: Yes (Hospitalization, Other)
  Sender: FDA-Public Use
  Company Number: US-RANBAXY-2011US-45511

PATIENT

DRUGS (3)
  1. ISOTRETINOIN [Suspect]
     Indication: ACNE
     Dosage: UNK, UNK
     Route: 048
     Dates: start: 20090201, end: 20090601
  2. AMNESTEEM [Suspect]
     Indication: ACNE
     Dosage: UNK
     Route: 048
     Dates: start: 20090601, end: 20090701
  3. ACCUTANE [Suspect]
     Indication: ACNE
     Dosage: UNK, UNK
     Route: 048

REACTIONS (7)
  - INFLAMMATORY BOWEL DISEASE [None]
  - ABDOMINAL PAIN [None]
  - RECTAL HAEMORRHAGE [None]
  - DIARRHOEA [None]
  - CROHN'S DISEASE [None]
  - COLITIS ULCERATIVE [None]
  - FREQUENT BOWEL MOVEMENTS [None]
